FAERS Safety Report 21262729 (Version 2)
Quarter: 2022Q3

REPORT INFORMATION
  Report Type: Report from Study
  Country: US (occurrence: None)
  Receive Date: 20220828
  Receipt Date: 20220916
  Transmission Date: 20221027
  Serious: Yes (Hospitalization, Other)
  Sender: FDA-Public Use
  Company Number: US-Merck Healthcare KGaA-9345903

PATIENT
  Sex: Male

DRUGS (1)
  1. REBIF [Suspect]
     Active Substance: INTERFERON BETA-1A
     Indication: Multiple sclerosis
     Route: 058
     Dates: start: 20170206

REACTIONS (6)
  - Atrial fibrillation [Unknown]
  - Arterial haemorrhage [Unknown]
  - Loss of consciousness [Unknown]
  - Abdominal injury [Unknown]
  - Wound complication [Unknown]
  - Weight increased [Unknown]
